FAERS Safety Report 14363447 (Version 1)
Quarter: 2018Q1

REPORT INFORMATION
  Report Type: Spontaneous
  Country: EG (occurrence: EG)
  Receive Date: 20180108
  Receipt Date: 20180108
  Transmission Date: 20180509
  Serious: Yes (Other)
  Sender: FDA-Public Use
  Company Number: EG-GLAXOSMITHKLINE-EG2017GSK202295

PATIENT

DRUGS (14)
  1. CATAFAST [Suspect]
     Active Substance: DICLOFENAC POTASSIUM
     Indication: HEADACHE
     Dosage: UNK
     Route: 065
  2. KETOFEN [Suspect]
     Active Substance: KETOPROFEN
     Indication: HEADACHE
     Dosage: UNK
     Route: 065
  3. KETOLAC [Suspect]
     Active Substance: KETOROLAC TROMETHAMINE
     Indication: HEADACHE
     Dosage: UNK (36/2 MG/ML)
  4. KETOLAC [Suspect]
     Active Substance: KETOROLAC TROMETHAMINE
     Indication: NASOPHARYNGITIS
  5. BI PROFENID [Suspect]
     Active Substance: KETOPROFEN
     Indication: HEADACHE
     Dosage: UNK (150 MG)
     Route: 065
  6. VOLTAREN [Suspect]
     Active Substance: DICLOFENAC SODIUM
     Indication: NASOPHARYNGITIS
  7. KETOFEN [Suspect]
     Active Substance: KETOPROFEN
     Indication: NASOPHARYNGITIS
  8. CATAFAST [Suspect]
     Active Substance: DICLOFENAC POTASSIUM
     Indication: NASOPHARYNGITIS
  9. CATAFLAM [Suspect]
     Active Substance: DICLOFENAC POTASSIUM
     Indication: HEADACHE
     Dosage: UNK (50 MG)
     Route: 065
  10. BI PROFENID [Suspect]
     Active Substance: KETOPROFEN
     Indication: NASOPHARYNGITIS
  11. VOLTAREN [Suspect]
     Active Substance: DICLOFENAC SODIUM
     Indication: HEADACHE
     Dosage: UNK (75/3 MG/ML)
     Route: 065
  12. CATAFLAM [Suspect]
     Active Substance: DICLOFENAC POTASSIUM
     Indication: NASOPHARYNGITIS
  13. BI-ALCOFAN [Suspect]
     Active Substance: KETOPROFEN
     Indication: HEADACHE
     Dosage: UNK
  14. BI-ALCOFAN [Suspect]
     Active Substance: KETOPROFEN
     Indication: NASOPHARYNGITIS

REACTIONS (1)
  - Renal failure [Unknown]
